FAERS Safety Report 10420835 (Version 1)
Quarter: 2014Q3

REPORT INFORMATION
  Report Type: Spontaneous
  Country: US (occurrence: None)
  Receive Date: 20140829
  Receipt Date: 20140829
  Transmission Date: 20150326
  Serious: Yes (Hospitalization, Other)
  Sender: FDA-Public Use
  Company Number: None

PATIENT
  Age: 51 Year
  Sex: Female

DRUGS (1)
  1. CIMZIA [Suspect]
     Active Substance: CERTOLIZUMAB PEGOL
     Indication: CROHN^S DISEASE
     Route: 058
     Dates: start: 20140609

REACTIONS (7)
  - Diarrhoea [None]
  - Vaginal lesion [None]
  - Infection [None]
  - Drug ineffective [None]
  - Abdominal pain [None]
  - Stomatitis [None]
  - Rectal lesion [None]

NARRATIVE: CASE EVENT DATE: 20140806
